FAERS Safety Report 4285960-4 (Version None)
Quarter: 2004Q1

REPORT INFORMATION
  Report Type: 
  Country: None (occurrence: None)
  Receive Date: 20040203
  Receipt Date: 20040121
  Transmission Date: 20041129
  Serious: Yes (Other)
  Sender: FDA-Public Use
  Company Number: CH-SHR-04-019282

PATIENT
  Age: 27 Year
  Sex: Female
  Weight: 88 kg

DRUGS (1)
  1. MIRENA [Suspect]
     Indication: CONTRACEPTION
     Dosage: 20 UG, CONT, INTRA-UTERINE
     Route: 015
     Dates: start: 19990901, end: 20020401

REACTIONS (7)
  - ABDOMINAL PAIN [None]
  - AMENORRHOEA [None]
  - CYST [None]
  - CYSTITIS [None]
  - INFERTILITY FEMALE [None]
  - MENSTRUATION IRREGULAR [None]
  - STRESS SYMPTOMS [None]
